FAERS Safety Report 4596442-4 (Version None)
Quarter: 2005Q1

REPORT INFORMATION
  Report Type: 
  Country: None (occurrence: None)
  Receive Date: 20050228
  Receipt Date: 20050210
  Transmission Date: 20050727
  Serious: Yes (Other)
  Sender: FDA-Public Use
  Company Number: L05-SWI-00739-01

PATIENT
  Age: 33 Year
  Sex: Male

DRUGS (10)
  1. CITALOPRAM [Suspect]
     Dosage: 20 MG QD
  2. METHADONE (METHADONE) [Suspect]
     Dosage: 80 MG QD
  3. METHADONE [Suspect]
     Dosage: 50 MG QD
  4. NIFEDIPINE [Suspect]
     Dosage: 60 MG QD
  5. BUTAMIRATE (BUTAMIRATE) [Concomitant]
  6. MIDAZOLAM HCL [Concomitant]
  7. OMEPRAZOLE [Concomitant]
  8. OXAZEPAM [Concomitant]
  9. ROFECOXIB [Concomitant]
  10. MORPHINE [Concomitant]

REACTIONS (3)
  - DRUG INTERACTION [None]
  - ELECTROCARDIOGRAM QT PROLONGED [None]
  - VENTRICULAR TACHYCARDIA [None]
